FAERS Safety Report 21558760 (Version 1)
Quarter: 2022Q4

REPORT INFORMATION
  Report Type: Spontaneous
  Country: CA (occurrence: CA)
  Receive Date: 20221107
  Receipt Date: 20221107
  Transmission Date: 20230113
  Serious: Yes (Hospitalization, Other)
  Sender: FDA-Public Use
  Company Number: CA-ORGANON-O2211CAN000517

PATIENT
  Age: 62 Year
  Sex: Female

DRUGS (13)
  1. SINGULAIR [Suspect]
     Active Substance: MONTELUKAST SODIUM
     Indication: Product used for unknown indication
     Dosage: UNK
     Route: 065
  2. BUDESONIDE [Suspect]
     Active Substance: BUDESONIDE
     Indication: Product used for unknown indication
     Dosage: DOSAGE FORM (NOT SPECIFIED)
  3. CETIRIZINE HYDROCHLORIDE [Suspect]
     Active Substance: CETIRIZINE HYDROCHLORIDE
     Indication: Product used for unknown indication
     Dosage: 10.0 MILLIGRAM, QD (1 EVERY 1 DAYS)
     Route: 065
  4. HUMAN C1-ESTERASE INHIBITOR [Suspect]
     Active Substance: HUMAN C1-ESTERASE INHIBITOR
     Indication: Product used for unknown indication
     Dosage: 1000.0 DOSAGE FORM
     Route: 042
  5. IPRATROPIUM [Suspect]
     Active Substance: IPRATROPIUM
     Indication: Product used for unknown indication
     Dosage: 2 DOSAGE FORM, QID
     Route: 065
  6. NUCALA [Suspect]
     Active Substance: MEPOLIZUMAB
     Indication: Asthma
     Dosage: 100.0 MILLIGRAM
     Route: 042
  7. PANTOPRAZOLE [Suspect]
     Active Substance: PANTOPRAZOLE
     Indication: Gastrooesophageal reflux disease
     Dosage: 40.0 MILLIGRAM, QD (1 EVERY 1 DAYS)
     Route: 065
  8. ALBUTEROL [Suspect]
     Active Substance: ALBUTEROL
     Indication: Wheezing
     Dosage: UNK
     Route: 065
  9. ALBUTEROL [Suspect]
     Active Substance: ALBUTEROL
     Indication: Chest discomfort
     Dosage: UNK
     Route: 065
  10. SYMBICORT [Suspect]
     Active Substance: BUDESONIDE\FORMOTEROL FUMARATE DIHYDRATE
     Indication: Product used for unknown indication
     Dosage: 8.0 DOSAGE FORM, QD (1 EVERY 1 DAYS)
  11. TIOTROPIUM BROMIDE [Suspect]
     Active Substance: TIOTROPIUM BROMIDE
     Indication: Product used for unknown indication
     Dosage: UNK
     Route: 065
  12. VALTREX [Suspect]
     Active Substance: VALACYCLOVIR HYDROCHLORIDE
     Indication: Product used for unknown indication
     Dosage: 500.0 MILLIGRAM, QD (1 EVERY 1 DAYS)
     Route: 048
  13. ZOPICLONE [Suspect]
     Active Substance: ZOPICLONE
     Indication: Product used for unknown indication
     Dosage: 3.75 MILLIGRAM, QD (1 EVERY 1 DAYS)
     Route: 065

REACTIONS (19)
  - Asthma [Unknown]
  - Blood immunoglobulin E increased [Unknown]
  - Chest discomfort [Unknown]
  - Chronic sinusitis [Unknown]
  - Cough [Unknown]
  - Dysphonia [Unknown]
  - Dyspnoea [Unknown]
  - Emotional distress [Unknown]
  - Eosinophilia [Unknown]
  - Ill-defined disorder [Unknown]
  - Laryngeal stenosis [Unknown]
  - Loss of personal independence in daily activities [Unknown]
  - Middle insomnia [Unknown]
  - Muscle spasms [Unknown]
  - Obstructive airways disorder [Unknown]
  - Sinus disorder [Unknown]
  - Skin lesion [Unknown]
  - Vocal cord dysfunction [Unknown]
  - Wheezing [Unknown]
